FAERS Safety Report 6266318-5 (Version None)
Quarter: 2009Q3

REPORT INFORMATION
  Report Type: 
  Country: None (occurrence: None)
  Receive Date: 20090713
  Receipt Date: 20090703
  Transmission Date: 20100115
  Serious: Yes (Other)
  Sender: FDA-Public Use
  Company Number: PHHY2009DE06030

PATIENT
  Sex: Male

DRUGS (4)
  1. ZOMETA [Suspect]
     Indication: METASTASES TO BONE
     Dosage: 4 MG, UNK
     Route: 042
     Dates: start: 20080101
  2. ALLOPURINOL [Concomitant]
  3. ZOLADEX [Concomitant]
     Indication: PROSTATIC DISORDER
     Dosage: UNK
     Dates: start: 20070101
  4. CASODEX [Concomitant]
     Indication: PROSTATE CANCER
     Dosage: UNK
     Dates: start: 20070101

REACTIONS (2)
  - ORAL SURGERY [None]
  - OSTEONECROSIS [None]
